FAERS Safety Report 4444221-0 (Version None)
Quarter: 2004Q3

REPORT INFORMATION
  Report Type: 
  Country: None (occurrence: None)
  Receive Date: 20040812
  Receipt Date: 20031031
  Transmission Date: 20050211
  Serious: Yes (Hospitalization, Other)
  Sender: FDA-Public Use
  Company Number: USA031151365

PATIENT
  Sex: Female
  Weight: 57 kg

DRUGS (5)
  1. HUMULIN R [Suspect]
     Indication: DIABETES MELLITUS
     Dates: start: 19830101, end: 20010101
  2. HUMULIN N [Suspect]
     Indication: DIABETES MELLITUS
     Dates: start: 19830101, end: 20010101
  3. INSULIN [Suspect]
     Indication: DIABETES MELLITUS
     Dates: start: 19760101
  4. HUMALOG [Suspect]
     Indication: DIABETES MELLITUS
     Dates: start: 20010101
  5. LANTUS [Concomitant]

REACTIONS (9)
  - BLINDNESS UNILATERAL [None]
  - BLOOD GLUCOSE DECREASED [None]
  - BLOOD GLUCOSE INCREASED [None]
  - DRUG INTOLERANCE [None]
  - HYPERPHAGIA [None]
  - LOSS OF CONSCIOUSNESS [None]
  - MACULAR OEDEMA [None]
  - RETINOPATHY [None]
  - VISUAL ACUITY REDUCED [None]
